FAERS Safety Report 6667088-9 (Version None)
Quarter: 2010Q2

REPORT INFORMATION
  Report Type: 
  Country: None (occurrence: None)
  Receive Date: 20100402
  Receipt Date: 20100402
  Transmission Date: 20101027
  Serious: No
  Sender: FDA-Public Use
  Company Number: None

PATIENT
  Age: 77 Year
  Sex: Male
  Weight: 65.7716 kg

DRUGS (1)
  1. LUPRON [Suspect]
     Indication: PROSTATE CANCER
     Dosage: RECEIVED TWO SHOTS
     Dates: start: 20040815, end: 20040915

REACTIONS (3)
  - ARTHRITIS [None]
  - DISABILITY [None]
  - OEDEMA PERIPHERAL [None]
